FAERS Safety Report 13724853 (Version 2)
Quarter: 2017Q4

REPORT INFORMATION
  Report Type: Spontaneous
  Country: US (occurrence: US)
  Receive Date: 20170706
  Receipt Date: 20171114
  Transmission Date: 20180320
  Serious: Yes (Other)
  Sender: FDA-Public Use
  Company Number: US-PFIZER INC-2017289697

PATIENT
  Age: 32 Year
  Sex: Female

DRUGS (15)
  1. EVEROLIMUS. [Interacting]
     Active Substance: EVEROLIMUS
     Dosage: 10 MG, DAILY
     Route: 048
  2. CYTARABINE. [Concomitant]
     Active Substance: CYTARABINE
     Indication: HODGKIN^S DISEASE NODULAR SCLEROSIS
     Dosage: UNK (HIGH-DOSE)
  3. IFOSFAMIDE. [Concomitant]
     Active Substance: IFOSFAMIDE
     Indication: HODGKIN^S DISEASE NODULAR SCLEROSIS
     Dosage: UNK, CYCLIC (THREE CYCLES)
  4. EVEROLIMUS. [Interacting]
     Active Substance: EVEROLIMUS
     Indication: HODGKIN^S DISEASE NODULAR SCLEROSIS
     Dosage: UNK
  5. EVEROLIMUS. [Interacting]
     Active Substance: EVEROLIMUS
     Dosage: 5 MG, DAILY
     Route: 048
     Dates: start: 201107
  6. DOXORUBICIN [Concomitant]
     Active Substance: DOXORUBICIN
     Indication: HODGKIN^S DISEASE
     Dosage: UNK, CYCLIC (6 CYCLES)
  7. BLEOMYCIN [Concomitant]
     Active Substance: BLEOMYCIN SULFATE
     Indication: HODGKIN^S DISEASE
     Dosage: UNK, CYCLIC (6 CYCLES)
  8. CARBOPLATIN. [Concomitant]
     Active Substance: CARBOPLATIN
     Indication: HODGKIN^S DISEASE NODULAR SCLEROSIS
     Dosage: UNK, CYCLIC (THREE CYCLES)
  9. CARMUSTINE [Concomitant]
     Active Substance: CARMUSTINE
     Indication: HODGKIN^S DISEASE NODULAR SCLEROSIS
     Dosage: UNK (HIGH-DOSE)
  10. MELPHALAN. [Concomitant]
     Active Substance: MELPHALAN
     Indication: HODGKIN^S DISEASE NODULAR SCLEROSIS
     Dosage: UNK (HIGH-DOSE)
  11. ETOPOSIDE. [Concomitant]
     Active Substance: ETOPOSIDE
     Indication: HODGKIN^S DISEASE NODULAR SCLEROSIS
     Dosage: UNK, CYCLIC (THREE CYCLES)
  12. VORICONAZOLE. [Suspect]
     Active Substance: VORICONAZOLE
     Indication: PNEUMONIA
     Dosage: UNK
  13. DACARBAZINE. [Concomitant]
     Active Substance: DACARBAZINE
     Indication: HODGKIN^S DISEASE
     Dosage: UNK, CYCLIC (6 CYCLES)
  14. ETOPOSIDE. [Concomitant]
     Active Substance: ETOPOSIDE
     Dosage: UNK (HIGH-DOSE)
  15. VINBLASTINE [Concomitant]
     Active Substance: VINBLASTINE
     Indication: HODGKIN^S DISEASE
     Dosage: UNK, CYCLIC (6 CYCLES)

REACTIONS (3)
  - Drug interaction [Unknown]
  - Nephrotic syndrome [Recovered/Resolved]
  - Immunosuppressant drug level increased [Unknown]
